FAERS Safety Report 7812651-2 (Version None)
Quarter: 2011Q4

REPORT INFORMATION
  Report Type: 
  Country: None (occurrence: None)
  Receive Date: 20111011
  Receipt Date: 20110929
  Transmission Date: 20120403
  Serious: Yes (Hospitalization)
  Sender: FDA-Public Use
  Company Number: DSA_47788_2011

PATIENT
  Age: 75 Year
  Sex: Male

DRUGS (8)
  1. NORVASC [Concomitant]
  2. ENALAPRIL MALEATE [Suspect]
     Indication: HYPERTENSION
     Dosage: (20 MG QD, ORAL)
     Route: 048
     Dates: start: 20080101
  3. OMEPRAZOLE [Concomitant]
  4. INSULIN [Concomitant]
  5. CRESTOR [Concomitant]
  6. CARVEDILOL [Suspect]
     Indication: HYPERTENSION
     Dosage: (37.5 MG QD ORAL)
     Route: 048
     Dates: start: 20080101
  7. ASPIRIN [Concomitant]
  8. GLIBOMET [Concomitant]

REACTIONS (3)
  - SYNCOPE [None]
  - FALL [None]
  - HEAD INJURY [None]
